FAERS Safety Report 19474849 (Version 13)
Quarter: 2022Q4

REPORT INFORMATION
  Report Type: Spontaneous
  Country: CA (occurrence: CA)
  Receive Date: 20210630
  Receipt Date: 20221112
  Transmission Date: 20230113
  Serious: Yes (Other)
  Sender: FDA-Public Use
  Company Number: CA-CELLTRION INC.-2021CA006547

PATIENT

DRUGS (23)
  1. INFLECTRA [Suspect]
     Active Substance: INFLIXIMAB-DYYB
     Indication: Psoriatic arthropathy
     Dosage: 700 MG (8 MG/KG), EVERY 6 WEEKS
     Route: 042
  2. INFLECTRA [Suspect]
     Active Substance: INFLIXIMAB-DYYB
     Dosage: 700 MG (8 MG/KG), EVERY 6 WEEKS
     Route: 042
     Dates: start: 20210506
  3. INFLECTRA [Suspect]
     Active Substance: INFLIXIMAB-DYYB
     Dosage: 700 MG (8 MG/KG), EVERY 6 WEEKS
     Route: 042
     Dates: start: 20210506, end: 20210730
  4. INFLECTRA [Suspect]
     Active Substance: INFLIXIMAB-DYYB
     Dosage: 700 MG (8 MG/KG), EVERY 6 WEEKS
     Route: 042
     Dates: start: 20210618
  5. INFLECTRA [Suspect]
     Active Substance: INFLIXIMAB-DYYB
     Dosage: 700 MG (8 MG/KG), EVERY 6 WEEKS
     Route: 042
     Dates: start: 20210730
  6. INFLECTRA [Suspect]
     Active Substance: INFLIXIMAB-DYYB
     Dosage: 700 MG (RECEIVED 700 MG BUT PRESCRIBED 600 MG), EVERY 6 WEEKS)
     Route: 042
     Dates: start: 20210910
  7. INFLECTRA [Suspect]
     Active Substance: INFLIXIMAB-DYYB
     Dosage: 600 MG, EVERY 6 WEEKS
     Route: 042
     Dates: start: 20210910, end: 20211022
  8. INFLECTRA [Suspect]
     Active Substance: INFLIXIMAB-DYYB
     Dosage: 700 MG (RECEIVED 700 MG BUT PRESCRIBED 600 MG), EVERY 6 WEEKS)
     Route: 042
     Dates: start: 20211022
  9. INFLECTRA [Suspect]
     Active Substance: INFLIXIMAB-DYYB
     Dosage: 800 MG EVERY 6 WEEK
     Route: 042
     Dates: start: 20211203
  10. INFLECTRA [Suspect]
     Active Substance: INFLIXIMAB-DYYB
     Dosage: 800 MG EVERY 6 WEEK
     Route: 042
     Dates: start: 20211203, end: 20220923
  11. INFLECTRA [Suspect]
     Active Substance: INFLIXIMAB-DYYB
     Dosage: 800 MG EVERY 6 WEEK
     Route: 042
     Dates: start: 20220208
  12. INFLECTRA [Suspect]
     Active Substance: INFLIXIMAB-DYYB
     Dosage: 800 MG EVERY 6 WEEK
     Route: 042
     Dates: start: 20220408
  13. INFLECTRA [Suspect]
     Active Substance: INFLIXIMAB-DYYB
     Dosage: 800 MG EVERY 6 WEEK
     Route: 042
     Dates: start: 20220923
  14. INFLECTRA [Suspect]
     Active Substance: INFLIXIMAB-DYYB
     Dosage: 800 MG EVERY 5 WEEK
     Route: 042
     Dates: start: 20221102
  15. BENADRYL [Concomitant]
     Active Substance: DIPHENHYDRAMINE HYDROCHLORIDE
     Dosage: UNK
     Route: 048
     Dates: start: 20210618
  16. BENADRYL [Concomitant]
     Active Substance: DIPHENHYDRAMINE HYDROCHLORIDE
     Dosage: 50 MG
     Route: 042
     Dates: start: 20211203
  17. DIMENHYDRINATE [Concomitant]
     Active Substance: DIMENHYDRINATE
     Indication: Premedication
     Dosage: 50 MG
     Dates: start: 20210618, end: 20210618
  18. DIPHENHYDRAMINE [Concomitant]
     Active Substance: DIPHENHYDRAMINE
     Indication: Premedication
     Dosage: 50 MG
     Dates: start: 20210618, end: 20210618
  19. DIPHENHYDRAMINE [Concomitant]
     Active Substance: DIPHENHYDRAMINE
     Dosage: 50 MG
     Route: 048
     Dates: start: 20210910, end: 20210910
  20. DIPHENHYDRAMINE [Concomitant]
     Active Substance: DIPHENHYDRAMINE
     Dosage: 50 MG
     Route: 048
     Dates: start: 20211022, end: 20211022
  21. GRAVOL [Concomitant]
     Active Substance: DIMENHYDRINATE
     Dosage: 50 MG
     Route: 042
     Dates: start: 20211203
  22. HYDROCORTISONE [Concomitant]
     Active Substance: HYDROCORTISONE
     Dosage: UNK
  23. LEFLUNOMIDE [Concomitant]
     Active Substance: LEFLUNOMIDE
     Dosage: 1 DF, DOSAGE NOT AVAILABLE
     Route: 065

REACTIONS (20)
  - Chest discomfort [Recovered/Resolved]
  - Hot flush [Recovered/Resolved]
  - Retching [Recovered/Resolved]
  - Hypertension [Unknown]
  - Heart rate increased [Unknown]
  - Flushing [Recovered/Resolved]
  - Dyspnoea [Recovered/Resolved]
  - Blood pressure fluctuation [Unknown]
  - Heart rate decreased [Unknown]
  - Infusion related reaction [Recovered/Resolved]
  - Nausea [Recovered/Resolved]
  - Weight decreased [Recovered/Resolved]
  - Heart rate irregular [Unknown]
  - Vomiting [Recovered/Resolved]
  - Exposure to SARS-CoV-2 [Unknown]
  - Off label use [Unknown]
  - Off label use [Unknown]
  - Off label use [Unknown]
  - Incorrect dose administered [Unknown]
  - Inappropriate schedule of product administration [Unknown]

NARRATIVE: CASE EVENT DATE: 20210101
